FAERS Safety Report 13627931 (Version 1)
Quarter: 2017Q2

REPORT INFORMATION
  Report Type: Spontaneous
  Country: US (occurrence: US)
  Receive Date: 20170607
  Receipt Date: 20170607
  Transmission Date: 20170830
  Serious: Yes (Other)
  Sender: FDA-Public Use
  Company Number: None

PATIENT
  Age: 81 Year
  Sex: Female
  Weight: 78.75 kg

DRUGS (1)
  1. OTEZLA [Suspect]
     Active Substance: APREMILAST
     Indication: PSORIASIS
     Dosage: ?          QUANTITY:120 TABLET(S);?
     Route: 048
     Dates: start: 20160901, end: 20170601

REACTIONS (5)
  - Gait disturbance [None]
  - Medical device site pain [None]
  - Fatigue [None]
  - Weight decreased [None]
  - Personality change [None]

NARRATIVE: CASE EVENT DATE: 20170101
